FAERS Safety Report 7730081-9 (Version None)
Quarter: 2011Q3

REPORT INFORMATION
  Report Type: 
  Country: None (occurrence: None)
  Receive Date: 20110906
  Receipt Date: 20110826
  Transmission Date: 20111222
  Serious: Yes (Hospitalization, Other)
  Sender: FDA-Public Use
  Company Number: PHHY2011FI59100

PATIENT
  Age: 43 Year
  Sex: Female

DRUGS (3)
  1. ATENOLOL [Interacting]
     Indication: HEART RATE INCREASED
     Dosage: 25 MG, DAILY
  2. CLOZAPINE [Suspect]
     Dosage: 500 MG, QD
     Dates: start: 20050101
  3. ABILIFY [Concomitant]
     Dosage: 30 MG, QD (MORNING)

REACTIONS (7)
  - HYPOTENSION [None]
  - SYNCOPE [None]
  - HEART RATE INCREASED [None]
  - DYSSTASIA [None]
  - DIZZINESS [None]
  - ORTHOSTATIC HYPOTENSION [None]
  - DRUG INTERACTION [None]
